FAERS Safety Report 19909013 (Version 1)
Quarter: 2021Q4

REPORT INFORMATION
  Report Type: Spontaneous
  Country: US (occurrence: US)
  Receive Date: 20211001
  Receipt Date: 20211001
  Transmission Date: 20220304
  Serious: No
  Sender: FDA-Public Use
  Company Number: US-AMARIN PHARMA, INC.-2020AMR000842

PATIENT
  Age: 58 Year
  Sex: Female
  Weight: 81.27 kg

DRUGS (8)
  1. VASCEPA [Suspect]
     Active Substance: ICOSAPENT ETHYL
     Indication: Type 2 diabetes mellitus
     Route: 048
     Dates: start: 201905, end: 201906
  2. VASCEPA [Suspect]
     Active Substance: ICOSAPENT ETHYL
     Indication: Weight decreased
  3. IBUPROFEN [Concomitant]
     Active Substance: IBUPROFEN
     Indication: Osteoarthritis
  4. ESSENTIAL OILS [Concomitant]
     Active Substance: ESSENTIAL OILS
     Indication: Osteoarthritis
  5. PEPPERMINT OIL [Concomitant]
     Active Substance: PEPPERMINT OIL
     Indication: Osteoarthritis
  6. PENETREX [Concomitant]
     Active Substance: ENOXACIN
     Indication: Osteoarthritis
  7. PAIN EASE [Concomitant]
     Active Substance: CAMPHOR OIL\MENTHOL\METHYL SALICYLATE
     Indication: Osteoarthritis
  8. METFORMIN [Concomitant]
     Active Substance: METFORMIN HYDROCHLORIDE
     Indication: Type 2 diabetes mellitus
     Route: 048
     Dates: start: 2014

REACTIONS (2)
  - Arthralgia [Recovered/Resolved]
  - Off label use [Recovered/Resolved]

NARRATIVE: CASE EVENT DATE: 20190501
